FAERS Safety Report 17814882 (Version 1)
Quarter: 2020Q2

REPORT INFORMATION
  Report Type: Other
  Country: GB (occurrence: GB)
  Receive Date: 20200522
  Receipt Date: 20200522
  Transmission Date: 20200714
  Serious: Yes (Hospitalization)
  Sender: FDA-Public Use
  Company Number: GB-B.BRAUN MEDICAL INC.-2084100

PATIENT
  Age: 35 Year
  Sex: Female

DRUGS (1)
  1. LIDOCAINE HYDROCHLORIDE AND DEXTROSE [Suspect]
     Active Substance: DEXTROSE\LIDOCAINE HYDROCHLORIDE
     Indication: ANAESTHETIC PREMEDICATION
     Route: 049

REACTIONS (6)
  - Nausea [None]
  - Taste disorder [None]
  - Vomiting [None]
  - Tinnitus [None]
  - Dizziness [None]
  - Sinus bradycardia [None]
